FAERS Safety Report 8074297-3 (Version None)
Quarter: 2012Q1

REPORT INFORMATION
  Report Type: 
  Country: None (occurrence: None)
  Receive Date: 20120126
  Receipt Date: 20120117
  Transmission Date: 20120608
  Serious: Yes (Life-Threatening)
  Sender: FDA-Public Use
  Company Number: US-MYLANLABS-2012S1001217

PATIENT
  Sex: Female

DRUGS (1)
  1. EMSAM [Suspect]
     Dosage: CHANGE Q24HR
     Route: 062

REACTIONS (2)
  - SUICIDE ATTEMPT [None]
  - INTENTIONAL DRUG MISUSE [None]
